FAERS Safety Report 9188772 (Version 1)
Quarter: 2013Q1

REPORT INFORMATION
  Report Type: Spontaneous
  Country: US (occurrence: US)
  Receive Date: 20130326
  Receipt Date: 20130326
  Transmission Date: 20140127
  Serious: No
  Sender: FDA-Public Use
  Company Number: US-009507513-1212USA002200

PATIENT
  Age: 27 Year
  Sex: Female

DRUGS (1)
  1. AFRIN [Suspect]
     Indication: NASOPHARYNGITIS
     Dosage: UNK, ONCE
     Route: 045
     Dates: start: 2012

REACTIONS (2)
  - Sneezing [Unknown]
  - Nasal dryness [Unknown]
